FAERS Safety Report 9054812 (Version 4)
Quarter: 2013Q1

REPORT INFORMATION
  Report Type: Spontaneous
  Country: JP (occurrence: JP)
  Receive Date: 20130209
  Receipt Date: 20130316
  Transmission Date: 20140127
  Serious: Yes (Other)
  Sender: FDA-Public Use
  Company Number: JP-AMGEN-JPNSP2013008996

PATIENT
  Age: 86 Year
  Sex: Female
  Weight: 39 kg

DRUGS (13)
  1. ARANESP [Suspect]
     Indication: NEPHROGENIC ANAEMIA
     Dosage: 20 MUG, 1X/WEEK
     Route: 040
     Dates: start: 20121221
  2. FESIN [Suspect]
     Dosage: 40 MG, UNK
     Route: 042
     Dates: start: 20120114
  3. PARIET [Concomitant]
     Dosage: 10 MG, QD
     Route: 048
  4. CARDENALIN [Concomitant]
     Dosage: 2 MG, QD
     Route: 048
  5. ZYLORIC [Concomitant]
     Dosage: 50 MG, QD
     Route: 048
  6. LIPITOR [Concomitant]
     Dosage: 5 MG, QD
     Route: 048
  7. WARFARIN [Concomitant]
     Dosage: 2 MG, QD
     Route: 048
  8. ITOROL [Concomitant]
     Dosage: 20 MG, BID
     Route: 048
  9. FLUITRAN [Concomitant]
     Dosage: 20 MG, BID
     Route: 048
  10. CALTAN [Concomitant]
     Dosage: 500 MG, UNK
     Route: 048
  11. ANPLAG [Concomitant]
     Dosage: 100 MG, TID
     Route: 048
  12. LASIX                              /00032601/ [Concomitant]
     Dosage: 40 MG, BID
     Route: 048
  13. ADALAT-CR [Concomitant]
     Dosage: 20 MG, QWK
     Route: 048

REACTIONS (1)
  - Anaphylactic shock [Recovering/Resolving]
